FAERS Safety Report 8084213-6 (Version None)
Quarter: 2012Q1

REPORT INFORMATION
  Report Type: 
  Country: None (occurrence: None)
  Receive Date: 20120128
  Receipt Date: 20110118
  Transmission Date: 20120608
  Serious: No
  Sender: FDA-Public Use
  Company Number: US-ABBOTT-11P-163-0699556-00

PATIENT
  Sex: Female
  Weight: 83.99 kg

DRUGS (4)
  1. METHOTREXATE [Concomitant]
     Indication: PRODUCT USED FOR UNKNOWN INDICATION
  2. HUMIRA [Suspect]
     Indication: RHEUMATOID ARTHRITIS
     Dates: start: 20060101
  3. HYDROCHLOROTHIAZIDE [Concomitant]
     Indication: BLOOD PRESSURE
  4. HORMONES [Concomitant]
     Indication: VULVOVAGINAL DRYNESS

REACTIONS (3)
  - DRY EYE [None]
  - DRY SKIN [None]
  - VULVOVAGINAL DRYNESS [None]
